FAERS Safety Report 5016316-4 (Version None)
Quarter: 2006Q2

REPORT INFORMATION
  Report Type: 
  Country: None (occurrence: None)
  Receive Date: 20060525
  Receipt Date: 20060511
  Transmission Date: 20061013
  Serious: Yes (Other)
  Sender: FDA-Public Use
  Company Number: FR200603005701

PATIENT
  Age: 56 Year
  Sex: Male
  Weight: 97 kg

DRUGS (7)
  1. ALIMTA [Suspect]
     Indication: NON-SMALL CELL LUNG CANCER
     Dosage: 500 MG/M2, OTHER, INTRAVENOUS
     Route: 042
     Dates: start: 20060306, end: 20060306
  2. FOLIC ACID [Concomitant]
  3. CYANOCOBALAMIN [Concomitant]
  4. CORTICOSTEROID NOS [Concomitant]
  5. BISOPROLOL FUMARATE [Concomitant]
  6. LIPANOR (CIPROFIBRATE) [Concomitant]
  7. PERMIXON (SERENOA REPENS) [Concomitant]

REACTIONS (5)
  - DERMATITIS ALLERGIC [None]
  - DERMATITIS EXFOLIATIVE [None]
  - PIGMENTATION DISORDER [None]
  - RED MAN SYNDROME [None]
  - TOXIC SKIN ERUPTION [None]
